FAERS Safety Report 12741318 (Version 1)
Quarter: 2016Q3

REPORT INFORMATION
  Report Type: Report from Study
  Country: US (occurrence: US)
  Receive Date: 20160914
  Receipt Date: 20160914
  Transmission Date: 20161109
  Serious: Yes (Other)
  Sender: FDA-Public Use
  Company Number: US-ROCHE-1055695

PATIENT
  Age: 72 Year
  Sex: Male
  Weight: 84 kg

DRUGS (14)
  1. BEVACIZUMAB [Suspect]
     Active Substance: BEVACIZUMAB
     Dosage: COURSE 3
     Route: 042
     Dates: start: 20110114
  2. TEMSIROLIMUS [Suspect]
     Active Substance: TEMSIROLIMUS
     Dosage: COURSE 5
     Route: 042
     Dates: start: 20110316
  3. TEMSIROLIMUS [Suspect]
     Active Substance: TEMSIROLIMUS
     Dosage: COURSE 2
     Route: 042
     Dates: start: 20101216
  4. TEMSIROLIMUS [Suspect]
     Active Substance: TEMSIROLIMUS
     Dosage: COURSE 10
     Route: 042
     Dates: start: 20110727
  5. TEMSIROLIMUS [Suspect]
     Active Substance: TEMSIROLIMUS
     Dosage: COURSE 3
     Route: 042
     Dates: start: 20110114
  6. BEVACIZUMAB [Suspect]
     Active Substance: BEVACIZUMAB
     Dosage: COURSE 4
     Route: 042
     Dates: start: 20110211
  7. TEMSIROLIMUS [Suspect]
     Active Substance: TEMSIROLIMUS
     Dosage: COURSE 9
     Route: 042
     Dates: start: 20110629
  8. TEMSIROLIMUS [Suspect]
     Active Substance: TEMSIROLIMUS
     Indication: PANCREATIC NEOPLASM
     Dosage: ON DAYS 1,8, 15, 22 OF EVENT CYCLE?COURSE 1
     Route: 042
     Dates: start: 20101117
  9. TEMSIROLIMUS [Suspect]
     Active Substance: TEMSIROLIMUS
     Dosage: COURSE 6
     Route: 042
     Dates: start: 20110406
  10. TEMSIROLIMUS [Suspect]
     Active Substance: TEMSIROLIMUS
     Dosage: COURSE 7
     Route: 042
     Dates: start: 20110504
  11. BEVACIZUMAB [Suspect]
     Active Substance: BEVACIZUMAB
     Indication: PANCREATIC NEOPLASM
     Dosage: OVER 30 TO 90 MINUTES, ON DAY 1 AND 15 FOR EVERY CYCLE??COURSE 1
     Route: 042
     Dates: start: 20101117
  12. TEMSIROLIMUS [Suspect]
     Active Substance: TEMSIROLIMUS
     Dosage: COURSE 4
     Route: 042
     Dates: start: 20110211
  13. BEVACIZUMAB [Suspect]
     Active Substance: BEVACIZUMAB
     Dosage: COURSE 2
     Route: 042
     Dates: start: 20101216
  14. TEMSIROLIMUS [Suspect]
     Active Substance: TEMSIROLIMUS
     Dosage: COURSE 8
     Route: 042
     Dates: start: 20110601

REACTIONS (4)
  - Lymphocyte count decreased [Unknown]
  - Hypoalbuminaemia [Unknown]
  - Blood bilirubin increased [Unknown]
  - Hyperglycaemia [Unknown]
